FAERS Safety Report 20543533 (Version 1)
Quarter: 2022Q1

REPORT INFORMATION
  Report Type: Report from Study
  Country: PR (occurrence: PR)
  Receive Date: 20220302
  Receipt Date: 20220302
  Transmission Date: 20220423
  Serious: Yes (Death)
  Sender: FDA-Public Use
  Company Number: PR-ABBVIE-22K-131-4299647-00

PATIENT
  Sex: Male
  Weight: 71.732 kg

DRUGS (1)
  1. VENCLEXTA [Suspect]
     Active Substance: VENETOCLAX
     Indication: Chronic lymphocytic leukaemia
     Route: 048
     Dates: start: 20210923

REACTIONS (1)
  - Death [Fatal]

NARRATIVE: CASE EVENT DATE: 20220221
